FAERS Safety Report 4652046-6 (Version None)
Quarter: 2005Q2

REPORT INFORMATION
  Report Type: 
  Country: None (occurrence: None)
  Receive Date: 20050502
  Receipt Date: 20050502
  Transmission Date: 20051028
  Serious: Yes (Hospitalization, Disabling)
  Sender: FDA-Public Use
  Company Number: None

PATIENT
  Sex: Male
  Weight: 36.7414 kg

DRUGS (2)
  1. STRATTERA [Suspect]
     Indication: ATTENTION DEFICIT/HYPERACTIVITY DISORDER
     Dosage: 1   DAILY    ORAL
     Route: 048
     Dates: start: 20030604, end: 20050429
  2. CONCERTA [Suspect]
     Indication: ATTENTION DEFICIT/HYPERACTIVITY DISORDER
     Dosage: 1   DAILY   ORAL
     Route: 048
     Dates: start: 20040623, end: 20050215

REACTIONS (6)
  - CEREBROVASCULAR ACCIDENT [None]
  - DYSARTHRIA [None]
  - EAR PAIN [None]
  - HEADACHE [None]
  - HEMIPARESIS [None]
  - VASOSPASM [None]
